FAERS Safety Report 23094646 (Version 1)
Quarter: 2023Q4

REPORT INFORMATION
  Report Type: Report from Study
  Country: US (occurrence: US)
  Receive Date: 20231023
  Receipt Date: 20231023
  Transmission Date: 20240110
  Serious: Yes (Hospitalization)
  Sender: FDA-Public Use
  Company Number: US-ABBVIE-5461565

PATIENT
  Age: 50 Year
  Sex: Female

DRUGS (1)
  1. HUMIRA [Suspect]
     Active Substance: ADALIMUMAB
     Indication: Psoriatic arthropathy
     Dosage: 40MG/0.4ML FORM STRENGTH: 40 MG
     Route: 058
     Dates: start: 20221028

REACTIONS (6)
  - Psoriatic arthropathy [Recovering/Resolving]
  - Rash [Recovering/Resolving]
  - Beta haemolytic streptococcal infection [Recovering/Resolving]
  - Fungal infection [Recovering/Resolving]
  - Vomiting [Recovering/Resolving]
  - Oropharyngeal pain [Recovering/Resolving]

NARRATIVE: CASE EVENT DATE: 20231012
